FAERS Safety Report 23588333 (Version 1)
Quarter: 2024Q1

REPORT INFORMATION
  Report Type: Spontaneous
  Country: US (occurrence: None)
  Receive Date: 20240302
  Receipt Date: 20240302
  Transmission Date: 20240409
  Serious: No
  Sender: FDA-Public Use
  Company Number: 2024A048948

PATIENT
  Sex: Female

DRUGS (2)
  1. BREZTRI [Suspect]
     Active Substance: BUDESONIDE\FORMOTEROL\GLYCOPYRROLATE
     Route: 055
  2. ALBUTEROL [Concomitant]
     Active Substance: ALBUTEROL
     Dosage: TAKES ALBUTEROL INHALER AND ALBUTEROL IN A NEBULIZER

REACTIONS (4)
  - Chronic obstructive pulmonary disease [Unknown]
  - Dysphonia [Unknown]
  - Dyspnoea [Unknown]
  - Drug ineffective [Unknown]
